FAERS Safety Report 5467859-0 (Version None)
Quarter: 2007Q3

REPORT INFORMATION
  Report Type: 
  Country: None (occurrence: None)
  Receive Date: 20070926
  Receipt Date: 20070914
  Transmission Date: 20080115
  Serious: Yes (Hospitalization)
  Sender: FDA-Public Use
  Company Number: DE-JNJFOC-20070900686

PATIENT
  Sex: Female
  Weight: 53 kg

DRUGS (4)
  1. DOXORUBICIN HCL [Suspect]
     Indication: BREAST CANCER METASTATIC
     Route: 042
  2. HYDROCHLOROTHIAZIDE [Concomitant]
     Indication: ATRIAL FIBRILLATION
     Route: 048
  3. RAMIPRIL [Concomitant]
     Indication: ATRIAL FIBRILLATION
     Route: 048
  4. METOHEXAL [Concomitant]
     Route: 048

REACTIONS (4)
  - ATRIAL FIBRILLATION [None]
  - DIARRHOEA [None]
  - RESPIRATORY DISORDER [None]
  - STRIDOR [None]
